FAERS Safety Report 9239794 (Version 1)
Quarter: 2013Q2

REPORT INFORMATION
  Report Type: Spontaneous
  Country: US (occurrence: US)
  Receive Date: 20130418
  Receipt Date: 20130418
  Transmission Date: 20140414
  Serious: Yes (Hospitalization)
  Sender: FDA-Public Use
  Company Number: US-GLAXOSMITHKLINE-A1020424A

PATIENT
  Age: 39 Year
  Sex: Female

DRUGS (24)
  1. BENLYSTA [Suspect]
     Indication: SYSTEMIC LUPUS ERYTHEMATOSUS
     Route: 042
     Dates: start: 201204, end: 201209
  2. OPANA [Concomitant]
  3. LOPID [Concomitant]
  4. NEURONTIN [Concomitant]
  5. SYNTHROID [Concomitant]
  6. TOPAMAX [Concomitant]
  7. REGLAN [Concomitant]
  8. NEXIUM [Concomitant]
  9. PLAQUENIL [Concomitant]
  10. CYMBALTA [Concomitant]
  11. METHOTREXATE [Concomitant]
  12. LEVOTHYROXINE [Concomitant]
  13. FOLIC ACID [Concomitant]
  14. LEVAQUIN [Concomitant]
  15. AMOXICILLIN [Concomitant]
  16. DIFLUCAN [Concomitant]
  17. PROBIOTIC [Concomitant]
  18. NYSTATIN [Concomitant]
  19. VITAMIN D [Concomitant]
  20. PHENERGAN [Concomitant]
  21. ZOFRAN [Concomitant]
  22. BENADRYL [Concomitant]
  23. HYDROXYZINE [Concomitant]
  24. UNKNOWN MEDICATION [Concomitant]

REACTIONS (8)
  - Gastrointestinal disorder [Recovering/Resolving]
  - Gastric disorder [Unknown]
  - Weight decreased [Unknown]
  - Abdominal pain [Unknown]
  - Nausea [Unknown]
  - Vomiting [Unknown]
  - Diarrhoea [Unknown]
  - Pain [Unknown]
